FAERS Safety Report 7400040-4 (Version None)
Quarter: 2011Q2

REPORT INFORMATION
  Report Type: 
  Country: None (occurrence: None)
  Receive Date: 20110407
  Receipt Date: 20110329
  Transmission Date: 20111010
  Serious: Yes (Death, Other)
  Sender: FDA-Public Use
  Company Number: JP-SANOFI-AVENTIS-2011SA019953

PATIENT

DRUGS (6)
  1. METHOTREXATE [Suspect]
     Route: 065
  2. AMIODARONE [Suspect]
     Route: 065
  3. LEFLUNOMIDE [Suspect]
     Route: 065
  4. PACLITAXEL [Suspect]
     Route: 065
  5. MESALAMINE [Suspect]
     Route: 065
  6. TAXOTERE [Suspect]
     Route: 065

REACTIONS (2)
  - LUNG DISORDER [None]
  - INTERSTITIAL LUNG DISEASE [None]
